FAERS Safety Report 15994869 (Version 1)
Quarter: 2019Q1

REPORT INFORMATION
  Report Type: Spontaneous
  Country: US (occurrence: US)
  Receive Date: 20190221
  Receipt Date: 20190221
  Transmission Date: 20190418
  Serious: Yes (Hospitalization)
  Sender: FDA-Public Use
  Company Number: None

PATIENT
  Age: 45 Year
  Sex: Female
  Weight: 60.75 kg

DRUGS (1)
  1. GAMMAGARD [Suspect]
     Active Substance: HUMAN IMMUNOGLOBULIN G
     Indication: IMMUNE SYSTEM DISORDER
     Dosage: ?          QUANTITY:20 MG;OTHER FREQUENCY:EVERY 3 WEEKS;?
     Route: 042
     Dates: start: 20190114, end: 20190207

REACTIONS (14)
  - Dyspnoea [None]
  - Vomiting [None]
  - Platelet count decreased [None]
  - Haematocrit decreased [None]
  - Photopsia [None]
  - Nausea [None]
  - Photosensitivity reaction [None]
  - Chest discomfort [None]
  - Migraine [None]
  - Gastrointestinal disorder [None]
  - Infusion related reaction [None]
  - Hyperacusis [None]
  - Paraesthesia [None]
  - Coagulopathy [None]

NARRATIVE: CASE EVENT DATE: 20190208
